FAERS Safety Report 13098197 (Version 1)
Quarter: 2017Q1

REPORT INFORMATION
  Report Type: Spontaneous
  Country: US (occurrence: US)
  Receive Date: 20170109
  Receipt Date: 20170109
  Transmission Date: 20170428
  Serious: Yes (Death)
  Sender: FDA-Public Use
  Company Number: US-MEDA-2017010012

PATIENT
  Age: 59 Year
  Sex: Male

DRUGS (4)
  1. HYDROCODONE W/ACETAMINOPHEN [Suspect]
     Active Substance: ACETAMINOPHEN\HYDROCODONE BITARTRATE
  2. CARISOPRODOL. [Suspect]
     Active Substance: CARISOPRODOL
  3. ALCOHOL. [Suspect]
     Active Substance: ALCOHOL
  4. BENZODIAZEPINE [Suspect]
     Active Substance: BENZODIAZEPINE

REACTIONS (2)
  - Cardio-respiratory arrest [Fatal]
  - Drug abuse [Fatal]

NARRATIVE: CASE EVENT DATE: 2015
